FAERS Safety Report 24352413 (Version 1)
Quarter: 2024Q3

REPORT INFORMATION
  Report Type: Spontaneous
  Country: RU (occurrence: RU)
  Receive Date: 20240923
  Receipt Date: 20240923
  Transmission Date: 20241017
  Serious: No
  Sender: ROCHE
  Company Number: RU-ROCHE-3580169

PATIENT
  Age: 68 Year
  Sex: Female

DRUGS (5)
  1. TRASTUZUMAB [Suspect]
     Active Substance: TRASTUZUMAB
     Indication: HER2 positive breast cancer
     Dosage: 8 MG/KG LOADING DOSE - 440 MG?6 MG/KG MAINTENANCE DOSE - 330 MG?6(8) MG/KG ON DAY 1 EVERY 21 DAYS FO
     Route: 065
  2. TRASTUZUMAB [Suspect]
     Active Substance: TRASTUZUMAB
     Indication: HER2 positive breast cancer
     Dosage: 8 MG/KG LOADING DOSE - 440 MG?6 MG/KG MAINTENANCE DOSE - 330 MG?6(8) MG/KG ON DAY 1 EVERY 21 DAYS FO
     Route: 065
  3. DOCETAXEL [Suspect]
     Active Substance: DOCETAXEL\DOCETAXEL ANHYDROUS
     Indication: HER2 positive breast cancer
     Dosage: 75 MG/M2 (120 MG)
     Route: 065
  4. CYCLOPHOSPHAMIDE [Suspect]
     Active Substance: CYCLOPHOSPHAMIDE
     Indication: HER2 positive breast cancer
     Dosage: 600 MG/M2 (970 MG) ON DAY 1 OF A 21-DAY CYCLE
     Route: 065
  5. DOXORUBICIN [Suspect]
     Active Substance: DOXORUBICIN
     Indication: HER2 positive breast cancer
     Dosage: 60 MG/M2 (100 MG) ON DAY 1
     Route: 065

REACTIONS (2)
  - Leukopenia [Unknown]
  - Anaemia [Unknown]
